FAERS Safety Report 10400223 (Version 2)
Quarter: 2014Q3

REPORT INFORMATION
  Report Type: Spontaneous
  Country: IT (occurrence: IT)
  Receive Date: 20140821
  Receipt Date: 20140909
  Transmission Date: 20150326
  Serious: Yes (Hospitalization)
  Sender: FDA-Public Use
  Company Number: IT-WATSON-2014-17927

PATIENT
  Age: 40 Year
  Sex: Female

DRUGS (1)
  1. CABERGOLINE (UNKNOWN) [Suspect]
     Active Substance: CABERGOLINE
     Indication: LACTATION INHIBITION THERAPY
     Dosage: UNK, TOTAL
     Route: 048
     Dates: start: 20140506, end: 20140506

REACTIONS (1)
  - Presyncope [Recovering/Resolving]

NARRATIVE: CASE EVENT DATE: 20140506
